FAERS Safety Report 21172308 (Version 1)
Quarter: 2022Q3

REPORT INFORMATION
  Report Type: Spontaneous
  Country: US (occurrence: None)
  Receive Date: 20220803
  Receipt Date: 20220803
  Transmission Date: 20221027
  Serious: Yes (Hospitalization)
  Sender: FDA-Public Use
  Company Number: None

PATIENT
  Sex: Female

DRUGS (5)
  1. COSENTYX [Suspect]
     Active Substance: SECUKINUMAB
     Indication: Ankylosing spondylitis
     Dosage: OTHER FREQUENCY : Q4WKS;?
     Route: 058
     Dates: start: 20210129
  2. METHOTREXATE [Concomitant]
     Active Substance: METHOTREXATE
  3. REMICADE [Concomitant]
     Active Substance: INFLIXIMAB
  4. SPRINTEC TAB [Concomitant]
  5. BD NESTABLE MIS [Concomitant]

REACTIONS (2)
  - Surgery [None]
  - Therapy interrupted [None]
